FAERS Safety Report 25385883 (Version 1)
Quarter: 2025Q2

REPORT INFORMATION
  Report Type: Spontaneous
  Country: FR (occurrence: FR)
  Receive Date: 20250602
  Receipt Date: 20250602
  Transmission Date: 20250717
  Serious: Yes (Death)
  Sender: PURDUE
  Company Number: None

PATIENT
  Age: 77 Year
  Sex: Male
  Weight: 82 kg

DRUGS (5)
  1. MORPHINE SULFATE [Interacting]
     Active Substance: MORPHINE SULFATE
     Indication: Pain
     Route: 048
     Dates: start: 20250323, end: 20250323
  2. MORPHINE SULFATE [Interacting]
     Active Substance: MORPHINE SULFATE
     Route: 042
     Dates: start: 20250323, end: 20250326
  3. OXYCODONE HYDROCHLORIDE [Interacting]
     Active Substance: OXYCODONE HYDROCHLORIDE
     Indication: Pain
     Route: 042
     Dates: start: 20250327, end: 20250329
  4. VOGALENE [Interacting]
     Active Substance: METOPIMAZINE
     Indication: Nausea
     Route: 048
     Dates: start: 20250325, end: 20250328
  5. CHLORPROMAZINE [Interacting]
     Active Substance: CHLORPROMAZINE
     Indication: Nausea
     Dosage: 1.04 MILLIGRAM, Q1H
     Route: 042
     Dates: start: 20250328, end: 20250328

REACTIONS (2)
  - Intestinal obstruction [Fatal]
  - Drug interaction [Fatal]

NARRATIVE: CASE EVENT DATE: 20250301
